FAERS Safety Report 18268287 (Version 4)
Quarter: 2020Q4

REPORT INFORMATION
  Report Type: Report from Study
  Country: US (occurrence: US)
  Receive Date: 20200915
  Receipt Date: 20201215
  Transmission Date: 20210113
  Serious: No
  Sender: FDA-Public Use
  Company Number: NVSC2020US250778

PATIENT
  Sex: Female

DRUGS (1)
  1. COSENTYX [Suspect]
     Active Substance: SECUKINUMAB
     Indication: PSORIATIC ARTHROPATHY
     Dosage: UNK (UNDER THE TONGUE)
     Route: 060

REACTIONS (6)
  - Incorrect route of product administration [Unknown]
  - Joint swelling [Unknown]
  - Pain [Unknown]
  - Drug ineffective [Unknown]
  - Arthropathy [Unknown]
  - Hepatic enzyme increased [Unknown]
